FAERS Safety Report 5261869-4 (Version None)
Quarter: 2007Q1

REPORT INFORMATION
  Report Type: 
  Country: None (occurrence: None)
  Receive Date: 20070310
  Receipt Date: 20070228
  Transmission Date: 20070707
  Serious: Yes (Other)
  Sender: FDA-Public Use
  Company Number: 2006UW26133

PATIENT
  Age: 23 Year
  Sex: Male
  Weight: 81.8 kg

DRUGS (10)
  1. SEROQUEL [Suspect]
     Indication: SCHIZOPHRENIA
     Route: 048
     Dates: start: 20020801
  2. SEROQUEL [Suspect]
     Indication: DEPRESSION
     Route: 048
     Dates: start: 20020801
  3. SEROQUEL [Suspect]
     Route: 048
     Dates: start: 20030101, end: 20040101
  4. SEROQUEL [Suspect]
     Route: 048
     Dates: start: 20030101, end: 20040101
  5. GEODON [Concomitant]
  6. HALDOL [Concomitant]
  7. TRILAFON [Concomitant]
  8. TRIAVIL [Concomitant]
  9. ZYPREXA [Concomitant]
  10. SYMBYAX [Concomitant]

REACTIONS (6)
  - BLOOD CHOLESTEROL INCREASED [None]
  - BLOOD TRIGLYCERIDES INCREASED [None]
  - DIABETIC KETOACIDOSIS [None]
  - HYPERLIPIDAEMIA [None]
  - KETOACIDOSIS [None]
  - PANCREATITIS [None]
